FAERS Safety Report 25970896 (Version 3)
Quarter: 2025Q4

REPORT INFORMATION
  Report Type: Spontaneous
  Country: US (occurrence: US)
  Receive Date: 20251028
  Receipt Date: 20251218
  Transmission Date: 20260117
  Serious: Yes (Other)
  Sender: BRISTOL-MYERS SQUIBB COMPANY
  Company Number: US-BRISTOL-MYERS SQUIBB COMPANY-2025-145143

PATIENT
  Age: 77 Year
  Sex: Female

DRUGS (1)
  1. REVLIMID [Suspect]
     Active Substance: LENALIDOMIDE
     Indication: Plasma cell myeloma
     Dosage: DAILY,TAKE 1 CAPSULE BY MOUTH EVERY MORNING WITH WATER FOR 21 DAYS ON THEN 7 DAYS OFF (DO NOT BREAK, CHEW, OR OPEN
     Route: 048

REACTIONS (2)
  - Thrombosis [Unknown]
  - Neuropathy peripheral [Unknown]
